FAERS Safety Report 4741510-7 (Version None)
Quarter: 2005Q3

REPORT INFORMATION
  Report Type: 
  Country: None (occurrence: None)
  Receive Date: 20050808
  Receipt Date: 20050722
  Transmission Date: 20060218
  Serious: Yes (Hospitalization, Other)
  Sender: FDA-Public Use
  Company Number: FRWYE852322JUL05

PATIENT
  Age: 68 Year
  Sex: Male

DRUGS (10)
  1. BISOPROLOL FUMARATE [Suspect]
     Indication: HYPERTENSION
     Dosage: 10 MG 1X PER 1 DAY ORAL
     Route: 048
  2. EUPRESSYL (URAPIDIL, , 0) [Suspect]
     Indication: HYPERTENSION
     Dosage: 30 MG 2X PER 1 DAY ORAL
     Route: 048
  3. HYTACAND (CANDESARTAN CILEXETIL/HYDROCHLOROTHIAZIDE, , 0) [Suspect]
     Indication: HYPERTENSION
     Dosage: 16 MG 1X PER 1 DAY ORAL
     Route: 048
  4. ZANIDIP (LERCANIDIPINE HYDROCHLORIDE, , 0) [Suspect]
     Indication: HYPERTENSION
     Dosage: ORAL
     Route: 048
     Dates: end: 20050420
  5. NOOTROPYL (PIRACETAM) [Concomitant]
  6. DOMPERIDONE (DOMPERIDONE) [Concomitant]
  7. METFORMIN HCL [Concomitant]
  8. FENOFIBRATE [Concomitant]
  9. AVANDIA [Concomitant]
  10. AMLODIPINE BESYLATE [Concomitant]

REACTIONS (12)
  - BLOOD BICARBONATE INCREASED [None]
  - BLOOD SODIUM DECREASED [None]
  - DIARRHOEA [None]
  - DRUG INTERACTION [None]
  - FACE INJURY [None]
  - HEAD INJURY [None]
  - HYPOVOLAEMIA [None]
  - LOSS OF CONSCIOUSNESS [None]
  - MALAISE [None]
  - ORTHOSTATIC HYPOTENSION [None]
  - POST-TRAUMATIC AMNESTIC DISORDER [None]
  - PYREXIA [None]
